FAERS Safety Report 11621700 (Version 2)
Quarter: 2016Q1

REPORT INFORMATION
  Report Type: Report from Study
  Country: US (occurrence: US)
  Receive Date: 20151013
  Receipt Date: 20160209
  Transmission Date: 20160525
  Serious: Yes (Other)
  Sender: FDA-Public Use
  Company Number: US-AMGEN-USASL2015105850

PATIENT
  Age: 63 Year
  Sex: Male

DRUGS (2)
  1. ENBREL [Suspect]
     Active Substance: ETANERCEPT
     Indication: RHEUMATOID ARTHRITIS
     Dosage: 50 MG, QWK
     Route: 065
     Dates: start: 20150923
  2. PREDNISONE                         /00044702/ [Concomitant]
     Active Substance: PREDNISONE
     Indication: MYALGIA
     Dosage: UNK

REACTIONS (11)
  - Throat irritation [Unknown]
  - Arthralgia [Recovering/Resolving]
  - Tooth disorder [Unknown]
  - Peripheral swelling [Recovering/Resolving]
  - Injection site haemorrhage [Unknown]
  - Musculoskeletal pain [Unknown]
  - Type 2 diabetes mellitus [Unknown]
  - Walking aid user [Not Recovered/Not Resolved]
  - Oropharyngeal pain [Unknown]
  - Arthrodesis [Unknown]
  - Laceration [Unknown]

NARRATIVE: CASE EVENT DATE: 2015
